FAERS Safety Report 9530434 (Version 1)
Quarter: 2013Q3

REPORT INFORMATION
  Report Type: Report from Study
  Country: AU (occurrence: AU)
  Receive Date: 20130918
  Receipt Date: 20130918
  Transmission Date: 20140515
  Serious: Yes (Other)
  Sender: FDA-Public Use
  Company Number: AU-009507513-1309AUS003884

PATIENT
  Age: 65 Year
  Sex: Male

DRUGS (7)
  1. RIBAVIRIN [Suspect]
     Indication: HEPATITIS C
     Dosage: DAILY 1000 MG
     Route: 048
     Dates: start: 20120828
  2. DACLATASVIR [Suspect]
     Indication: HEPATITIS C
     Dosage: 60 MG, ONCE A DAY
     Dates: start: 20121214, end: 20130514
  3. SOFOSBUVIR [Suspect]
     Indication: HEPATITIS C
     Dosage: 400 MG, ONCE DAILY
     Dates: start: 20120828, end: 20130514
  4. EVEROLIMUS [Concomitant]
     Dosage: 0.5 MG, UNK
  5. CARVEDILOL [Concomitant]
     Dosage: 2 X 6.25 MG DAILY
  6. ALLOPURINOL [Concomitant]
     Dosage: 300 MG EVERY OTHER DAY
  7. CANDESARTAN CILEXETIL [Concomitant]
     Indication: HYPERTENSION
     Dosage: 2 X 8 MG DAILY

REACTIONS (3)
  - Tendon rupture [Not Recovered/Not Resolved]
  - Fatigue [Unknown]
  - Insomnia [Unknown]
